FAERS Safety Report 4501990-9 (Version None)
Quarter: 2004Q4

REPORT INFORMATION
  Report Type: 
  Country: None (occurrence: None)
  Receive Date: 20041109
  Receipt Date: 20041025
  Transmission Date: 20050328
  Serious: Yes (Other)
  Sender: FDA-Public Use
  Company Number: 2004241428GB

PATIENT
  Age: 63 Year
  Sex: Female
  Weight: 84.1 kg

DRUGS (6)
  1. CELEBREX [Suspect]
     Indication: OSTEOARTHRITIS
     Dosage: QD, ORAL
     Route: 048
     Dates: start: 20041005, end: 20041021
  2. SALBUTAMOL (SALBUTAMOL) [Concomitant]
  3. ALENDRONIC ACID (ALENDRONIC ACID) [Concomitant]
  4. ROFECOXIB [Concomitant]
  5. ROPINIROLE [Concomitant]
  6. SINEMET CR [Concomitant]

REACTIONS (3)
  - CHILLS [None]
  - CONFUSIONAL STATE [None]
  - TREMOR [None]
